FAERS Safety Report 7648945-3 (Version None)
Quarter: 2011Q3

REPORT INFORMATION
  Report Type: 
  Country: None (occurrence: None)
  Receive Date: 20110801
  Receipt Date: 20110722
  Transmission Date: 20111222
  Serious: Yes (Hospitalization)
  Sender: FDA-Public Use
  Company Number: US-BRISTOL-MYERS SQUIBB COMPANY-15918261

PATIENT
  Age: 7 Year
  Sex: Male
  Weight: 23 kg

DRUGS (1)
  1. IPILIMUMAB [Suspect]
     Indication: MALIGNANT MELANOMA
     Dosage: LAST DOSE ON 08JUL11,CYCLE 21DAYS,10MG/KG OVER 90 MIN ON DAY 1
     Route: 042
     Dates: start: 20110708

REACTIONS (2)
  - VOMITING [None]
  - DIARRHOEA [None]
